FAERS Safety Report 9689542 (Version 5)
Quarter: 2014Q1

REPORT INFORMATION
  Report Type: Report from Study
  Country: BR (occurrence: BR)
  Receive Date: 20131115
  Receipt Date: 20140225
  Transmission Date: 20141002
  Serious: Yes (Hospitalization, Other)
  Sender: FDA-Public Use
  Company Number: BR-ROCHE-1302698

PATIENT
  Age: 49 Year
  Sex: Female

DRUGS (9)
  1. XOLAIR [Suspect]
     Indication: ASTHMA
     Dosage: 2 AMPOULES
     Route: 042
     Dates: start: 201105
  2. XOLAIR [Suspect]
     Indication: LUNG DISORDER
     Dosage: ONE AMPOULE AND HALF
     Route: 030
     Dates: start: 20110505
  3. BUSONID [Concomitant]
  4. INSULIN HUMAN [Concomitant]
     Route: 065
     Dates: start: 201303
  5. SYMBICORT [Concomitant]
  6. METICORTEN [Concomitant]
  7. OMEPRAZOLE [Concomitant]
  8. SALBUTAMOL [Concomitant]
  9. FORASEQ (BRAZIL) [Concomitant]

REACTIONS (15)
  - Pneumonia [Recovering/Resolving]
  - Fall [Unknown]
  - Periorbital haematoma [Recovered/Resolved]
  - Osteoarthritis [Recovered/Resolved]
  - Face injury [Recovered/Resolved]
  - Incorrect route of drug administration [Unknown]
  - Asthmatic crisis [Recovered/Resolved]
  - Vision blurred [Recovered/Resolved]
  - Drug dependence [Unknown]
  - Somnolence [Recovered/Resolved]
  - Secretion discharge [Not Recovered/Not Resolved]
  - Weight decreased [Unknown]
  - Malaise [Unknown]
  - Infection [Recovering/Resolving]
  - Dizziness [Unknown]
